FAERS Safety Report 9087528 (Version 1)
Quarter: 2013Q1

REPORT INFORMATION
  Report Type: Report from Study
  Country: US (occurrence: US)
  Receive Date: 20130201
  Receipt Date: 20130201
  Transmission Date: 20140127
  Serious: No
  Sender: FDA-Public Use
  Company Number: US-ABBOTT-12P-163-1025121-00

PATIENT
  Sex: Female
  Weight: 83.99 kg

DRUGS (15)
  1. HUMIRA [Suspect]
     Indication: PSORIATIC ARTHROPATHY
     Dates: start: 2011, end: 201110
  2. ALBUTEROL [Concomitant]
     Indication: ASTHMA
  3. ATROVENT [Concomitant]
     Indication: ASTHMA
  4. CEREFOLIN [Concomitant]
     Indication: SUPPLEMENTATION THERAPY
  5. CYMBALTA [Concomitant]
     Indication: DEPRESSION
  6. FLEXERIL [Concomitant]
     Indication: PAIN
  7. CLONOPIN [Concomitant]
     Indication: ANXIETY
  8. LEUCOVORIN [Concomitant]
     Indication: SUPPLEMENTATION THERAPY
  9. LOFIBRA [Concomitant]
     Indication: BLOOD CHOLESTEROL INCREASED
  10. METHOTREXATE [Concomitant]
     Indication: PSORIATIC ARTHROPATHY
  11. NEXIUM [Concomitant]
     Indication: ILL-DEFINED DISORDER
  12. PROZAC [Concomitant]
     Indication: DEPRESSION
  13. TALACEN [Concomitant]
     Indication: PAIN
  14. VITAMIN C [Concomitant]
     Indication: SUPPLEMENTATION THERAPY
  15. VITAMIN D NOS [Concomitant]
     Indication: SUPPLEMENTATION THERAPY

REACTIONS (1)
  - Drug ineffective [Recovered/Resolved]
